FAERS Safety Report 15455951 (Version 4)
Quarter: 2019Q1

REPORT INFORMATION
  Report Type: Spontaneous
  Country: US (occurrence: US)
  Receive Date: 20181002
  Receipt Date: 20190205
  Transmission Date: 20190417
  Serious: No
  Sender: FDA-Public Use
  Company Number: US-PFIZER INC-2018390354

PATIENT
  Age: 65 Year
  Sex: Female
  Weight: 107 kg

DRUGS (1)
  1. IBRANCE [Suspect]
     Active Substance: PALBOCICLIB
     Indication: BREAST CANCER METASTATIC
     Dosage: 100 MG, 1X/DAY
     Route: 048

REACTIONS (6)
  - Diarrhoea [Not Recovered/Not Resolved]
  - Depressed mood [Unknown]
  - Heart rate irregular [Unknown]
  - Depression [Unknown]
  - Impaired driving ability [Unknown]
  - Temperature intolerance [Unknown]

NARRATIVE: CASE EVENT DATE: 201809
